FAERS Safety Report 8003653-4 (Version None)
Quarter: 2011Q4

REPORT INFORMATION
  Report Type: 
  Country: None (occurrence: None)
  Receive Date: 20111222
  Receipt Date: 20111214
  Transmission Date: 20120403
  Serious: Yes (Other)
  Sender: FDA-Public Use
  Company Number: US-ACTELION-A-US2010-43054

PATIENT

DRUGS (9)
  1. TREPROSTINIL [Concomitant]
  2. TOPAMAX [Concomitant]
  3. SINGULAIR [Concomitant]
  4. TRACLEER [Suspect]
     Indication: PULMONARY ARTERIAL HYPERTENSION
     Dosage: 125 MG, BID
     Route: 048
     Dates: start: 20080213, end: 20101201
  5. TRACLEER [Suspect]
     Dosage: 125 MG, BID
     Route: 048
     Dates: start: 20101221
  6. COUMADIN [Concomitant]
  7. REVATIO [Concomitant]
  8. DIGOXIN [Concomitant]
  9. SEASONALE [Concomitant]

REACTIONS (4)
  - VOMITING IN PREGNANCY [None]
  - FATIGUE [None]
  - ABORTION INDUCED [None]
  - PREGNANCY [None]
